FAERS Safety Report 17440613 (Version 1)
Quarter: 2020Q1

REPORT INFORMATION
  Report Type: Spontaneous
  Country: US (occurrence: US)
  Receive Date: 20200220
  Receipt Date: 20200220
  Transmission Date: 20200409
  Serious: Yes (Life-Threatening, Hospitalization, Other)
  Sender: FDA-Public Use
  Company Number: US-SCIEGEN PHARMACEUTICALS INC-2020SCILIT00043

PATIENT
  Age: 52 Year
  Sex: Female

DRUGS (5)
  1. GABAPENTIN TABLETS [Concomitant]
     Active Substance: GABAPENTIN
  2. METFORMIN HYDROCHLORIDETABLETS [Concomitant]
     Active Substance: METFORMIN HYDROCHLORIDE
  3. TRAZODONE [Interacting]
     Active Substance: TRAZODONE HYDROCHLORIDE
  4. SERTRALINE HYDROCHLORIDE TABLETS [Suspect]
     Active Substance: SERTRALINE HYDROCHLORIDE
  5. LIDOCAINE. [Interacting]
     Active Substance: LIDOCAINE

REACTIONS (7)
  - Nystagmus [Unknown]
  - Cardiac arrest [Recovered/Resolved]
  - Drug interaction [Recovered/Resolved]
  - Bradycardia [Recovered/Resolved]
  - Nausea [Unknown]
  - Toxicity to various agents [Recovered/Resolved]
  - Gait disturbance [Unknown]
